FAERS Safety Report 14958869 (Version 9)
Quarter: 2019Q4

REPORT INFORMATION
  Report Type: Report from Study
  Country: CA (occurrence: CA)
  Receive Date: 20180531
  Receipt Date: 20191216
  Transmission Date: 20200122
  Serious: Yes (Hospitalization, Other)
  Sender: FDA-Public Use
  Company Number: PHHY2018CA008174

PATIENT
  Age: 39 Year
  Sex: Female

DRUGS (3)
  1. DICLOFENAC [Suspect]
     Active Substance: DICLOFENAC
     Indication: ANKYLOSING SPONDYLITIS
     Dosage: 1 DF (50 MG), BID
     Route: 048
     Dates: start: 201711
  2. CELEBREX [Concomitant]
     Active Substance: CELECOXIB
     Indication: PRODUCT USED FOR UNKNOWN INDICATION
     Dosage: 1 DF, BID
     Route: 048
     Dates: start: 2016, end: 2017
  3. ERELZI [Suspect]
     Active Substance: ETANERCEPT-SZZS
     Indication: ANKYLOSING SPONDYLITIS
     Dosage: 50 MG, QW
     Route: 058
     Dates: start: 20180529

REACTIONS (19)
  - Nasopharyngitis [Not Recovered/Not Resolved]
  - Cough [Unknown]
  - Dehydration [Unknown]
  - Anxiety [Unknown]
  - Dyspnoea [Unknown]
  - Rhinorrhoea [Unknown]
  - Oropharyngeal pain [Unknown]
  - Ankylosing spondylitis [Unknown]
  - Bronchitis [Unknown]
  - Injection site pain [Unknown]
  - Influenza [Unknown]
  - Productive cough [Unknown]
  - Mucosal discolouration [Unknown]
  - Ear pain [Unknown]
  - Lower limb fracture [Unknown]
  - Pyrexia [Recovered/Resolved]
  - Fatigue [Recovering/Resolving]
  - Diarrhoea [Unknown]
  - Bronchospasm [Unknown]

NARRATIVE: CASE EVENT DATE: 20180529
